FAERS Safety Report 7622625-2 (Version None)
Quarter: 2011Q3

REPORT INFORMATION
  Report Type: 
  Country: None (occurrence: None)
  Receive Date: 20110712
  Receipt Date: 20110627
  Transmission Date: 20111222
  Serious: Yes (Other)
  Sender: FDA-Public Use
  Company Number: 2011MA008375

PATIENT
  Sex: Male

DRUGS (2)
  1. RAMIPRIL [Suspect]
  2. ZEMPLAR [Suspect]
     Dosage: 2 MCG;TIW

REACTIONS (4)
  - BLOOD POTASSIUM INCREASED [None]
  - FATIGUE [None]
  - LETHARGY [None]
  - DIALYSIS [None]
